FAERS Safety Report 14704766 (Version 1)
Quarter: 2018Q2

REPORT INFORMATION
  Report Type: Report from Study
  Country: US (occurrence: US)
  Receive Date: 20180402
  Receipt Date: 20180402
  Transmission Date: 20180711
  Serious: Yes (Hospitalization)
  Sender: FDA-Public Use
  Company Number: US-UCBSA-2018012724

PATIENT
  Age: 62 Year
  Sex: Female

DRUGS (1)
  1. LEVETIRACETAM. [Suspect]
     Active Substance: LEVETIRACETAM
     Indication: SEIZURE
     Dosage: UNK

REACTIONS (5)
  - Fall [Unknown]
  - Confusional state [Unknown]
  - Cerebral haemorrhage [Unknown]
  - Memory impairment [Unknown]
  - Somnolence [Unknown]
